FAERS Safety Report 9963230 (Version 1)
Quarter: 2014Q1

REPORT INFORMATION
  Report Type: Spontaneous
  Country: US (occurrence: US)
  Receive Date: 20140305
  Receipt Date: 20140305
  Transmission Date: 20141002
  Serious: No
  Sender: FDA-Public Use
  Company Number: US-ABBVIE-13P-163-1117590-00

PATIENT
  Sex: Female
  Weight: 104.87 kg

DRUGS (34)
  1. HUMIRA [Suspect]
     Indication: PSORIASIS
  2. HUMIRA [Suspect]
     Indication: PSORIATIC ARTHROPATHY
  3. UNKNOWN TOPICAL CREAMS [Concomitant]
     Indication: PRODUCT USED FOR UNKNOWN INDICATION
  4. AMMONIUM LACTATE [Concomitant]
     Indication: PSORIASIS
  5. VECTICAL [Concomitant]
     Indication: PSORIASIS
  6. BETAMETH DIP [Concomitant]
     Indication: SKIN DISORDER
  7. KETOC/TRIAMCINOLONE [Concomitant]
     Indication: RASH
  8. TRIAMCINOLONE EUCERIN [Concomitant]
     Indication: PSORIASIS
  9. ADVAIR [Concomitant]
     Indication: ASTHMA
  10. ADVAIR [Concomitant]
     Indication: CHRONIC OBSTRUCTIVE PULMONARY DISEASE
  11. PROAIR [Concomitant]
     Indication: ASTHMA
  12. PROAIR [Concomitant]
     Indication: CHRONIC OBSTRUCTIVE PULMONARY DISEASE
  13. VITAMIN B COMPLEX [Concomitant]
     Indication: PRODUCT USED FOR UNKNOWN INDICATION
  14. IRON [Concomitant]
     Indication: PRODUCT USED FOR UNKNOWN INDICATION
  15. VITAMIN D3 [Concomitant]
     Indication: PRODUCT USED FOR UNKNOWN INDICATION
  16. PRENATAL VITAMIN [Concomitant]
     Indication: PRODUCT USED FOR UNKNOWN INDICATION
  17. GLUCOSAMINE [Concomitant]
     Indication: ARTHRALGIA
  18. OXYCODONE [Concomitant]
     Indication: BACK PAIN
  19. BUTALB/APAP/CAFF [Concomitant]
     Indication: MENIERE^S DISEASE
  20. TOPMAX [Concomitant]
     Indication: HEADACHE
  21. SINGULAR [Concomitant]
     Indication: ASTHMA
  22. SINGULAR [Concomitant]
     Indication: HYPERSENSITIVITY
  23. LORATADINE [Concomitant]
     Indication: HYPERSENSITIVITY
  24. SIMVASTATIN [Concomitant]
     Indication: BLOOD CHOLESTEROL
  25. LEVOTHYROXINE [Concomitant]
     Indication: THYROID DISORDER
  26. PRAMIPEXOLE [Concomitant]
     Indication: RESTLESS LEGS SYNDROME
  27. DIAZAPAM [Concomitant]
     Indication: TINNITUS
  28. TIZANIDINE [Concomitant]
     Indication: MUSCLE SPASMS
  29. BUSPIRONE [Concomitant]
     Indication: DEPRESSION
  30. TRAMADOL [Concomitant]
     Indication: PAIN
  31. GABAPENTIN [Concomitant]
     Indication: PAIN
  32. CYMBALTA [Concomitant]
     Indication: MYOFASCIAL PAIN SYNDROME
  33. CYCLOBENZAPRINE [Concomitant]
     Indication: MUSCLE SPASMS
  34. ZOLPIDEM [Concomitant]
     Indication: INSOMNIA

REACTIONS (1)
  - Psoriasis [Recovering/Resolving]
